FAERS Safety Report 6404897-5 (Version None)
Quarter: 2009Q4

REPORT INFORMATION
  Report Type: 
  Country: None (occurrence: None)
  Receive Date: 20091019
  Receipt Date: 20080530
  Transmission Date: 20100525
  Serious: Yes (Hospitalization)
  Sender: FDA-Public Use
  Company Number: FR-PFIZER INC-2009266523

PATIENT
  Age: 65 Year

DRUGS (7)
  1. EPIRUBICIN HCL [Suspect]
     Indication: GASTRIC CANCER
  2. CISPLATIN [Suspect]
     Indication: GASTRIC CANCER
  3. XELODA [Suspect]
     Indication: GASTRIC CANCER
     Dosage: UNK
     Dates: end: 20071114
  4. GAVISCON [Concomitant]
     Indication: GASTROOESOPHAGEAL REFLUX DISEASE
     Dosage: 10 ML, UNK
     Route: 048
     Dates: start: 20071101
  5. PRIMALAN [Concomitant]
     Indication: SEASONAL ALLERGY
     Dosage: 10 MG, UNK
     Route: 048
  6. BECONASE [Concomitant]
     Indication: HYPERSENSITIVITY
     Dosage: 50 UG, UNK
     Route: 055
  7. PRAZEPAM [Concomitant]
     Indication: ANXIETY
     Dosage: 10 MG, UNK
     Route: 048
     Dates: start: 20071101

REACTIONS (1)
  - CHEST PAIN [None]
